FAERS Safety Report 6391333-0 (Version None)
Quarter: 2009Q4

REPORT INFORMATION
  Report Type: 
  Country: None (occurrence: None)
  Receive Date: 20091007
  Receipt Date: 20091001
  Transmission Date: 20100525
  Serious: Yes (Death)
  Sender: FDA-Public Use
  Company Number: IL-WYE-H11329809

PATIENT
  Age: 12 Month
  Sex: Male

DRUGS (4)
  1. TYGACIL [Suspect]
     Indication: SEPSIS
     Dosage: UNKNOWN
     Route: 042
  2. TYGACIL [Suspect]
     Indication: ACINETOBACTER INFECTION
  3. TYGACIL [Suspect]
     Indication: THERMAL BURN
  4. TYGACIL [Suspect]
     Indication: MULTIPLE-DRUG RESISTANCE

REACTIONS (1)
  - DEATH [None]
